FAERS Safety Report 9561844 (Version 1)
Quarter: 2013Q3

REPORT INFORMATION
  Report Type: Spontaneous
  Country: US (occurrence: US)
  Receive Date: 20130927
  Receipt Date: 20130927
  Transmission Date: 20140515
  Serious: No
  Sender: FDA-Public Use
  Company Number: US-BIOGENIDEC-2013BI063574

PATIENT
  Age: 50 Year
  Sex: Female
  Weight: 72 kg

DRUGS (14)
  1. TECFIDERA [Suspect]
     Indication: MULTIPLE SCLEROSIS
     Dates: start: 20130628
  2. CLONIDINE [Concomitant]
  3. DICYCLOMINE [Concomitant]
  4. MELOXICAM [Concomitant]
  5. OMEPRAZOLE [Concomitant]
  6. SPIRONOLACT [Concomitant]
  7. WELLBUTRIN [Concomitant]
  8. BUTRANS [Concomitant]
  9. CO Q10 [Concomitant]
  10. VITAMIN D3 [Concomitant]
  11. VITAMIN B COMPLEX [Concomitant]
  12. OMEGA 3 [Concomitant]
  13. TIZANIDINE [Concomitant]
  14. CYCLOBENZAPR [Concomitant]

REACTIONS (4)
  - Erythema [Not Recovered/Not Resolved]
  - Burning sensation [Unknown]
  - Flushing [Unknown]
  - Hyperhidrosis [Unknown]
